FAERS Safety Report 9733325 (Version 1)
Quarter: 2013Q4

REPORT INFORMATION
  Report Type: Spontaneous
  Country: US (occurrence: None)
  Receive Date: 20131204
  Receipt Date: 20131204
  Transmission Date: 20140711
  Serious: Yes (Hospitalization)
  Sender: FDA-Public Use
  Company Number: None

PATIENT
  Age: 60 Year
  Sex: Female
  Weight: 71.75 kg

DRUGS (3)
  1. CARBOPLATIN [Suspect]
  2. PACLITAXEL [Suspect]
  3. PEGFILGRASTIM [Suspect]

REACTIONS (1)
  - Death [None]
